FAERS Safety Report 21315635 (Version 1)
Quarter: 2022Q3

REPORT INFORMATION
  Report Type: Report from Study
  Country: CO (occurrence: CO)
  Receive Date: 20220909
  Receipt Date: 20220909
  Transmission Date: 20221027
  Serious: Yes (Other)
  Sender: FDA-Public Use
  Company Number: CO-ABBVIE-22K-036-4532961-00

PATIENT
  Sex: Male
  Weight: 73 kg

DRUGS (3)
  1. HUMIRA [Suspect]
     Active Substance: ADALIMUMAB
     Indication: Ankylosing spondylitis
     Route: 058
     Dates: start: 20130416, end: 201910
  2. HUMIRA [Suspect]
     Active Substance: ADALIMUMAB
     Indication: Ankylosing spondylitis
     Route: 058
     Dates: start: 20210420
  3. CERTOLIZUMAB [Suspect]
     Active Substance: CERTOLIZUMAB
     Indication: Ankylosing spondylitis
     Route: 058
     Dates: start: 201910, end: 202103

REACTIONS (9)
  - Visual impairment [Recovering/Resolving]
  - Cataract [Recovering/Resolving]
  - Visual impairment [Recovering/Resolving]
  - Arthritis [Recovered/Resolved]
  - Inflammation [Recovering/Resolving]
  - Uveitis [Recovering/Resolving]
  - Uveitis [Recovered/Resolved]
  - Arthralgia [Recovered/Resolved]
  - Uveitis [Recovered/Resolved]

NARRATIVE: CASE EVENT DATE: 20130101
